FAERS Safety Report 15008906 (Version 2)
Quarter: 2018Q4

REPORT INFORMATION
  Report Type: Report from Study
  Country: US (occurrence: US)
  Receive Date: 20180613
  Receipt Date: 20181103
  Transmission Date: 20190204
  Serious: Yes (Hospitalization, Other)
  Sender: FDA-Public Use
  Company Number: PHHY2018US047910

PATIENT
  Age: 29 Year
  Sex: Female
  Weight: 58.4 kg

DRUGS (27)
  1. CETIRIZINE [Concomitant]
     Active Substance: CETIRIZINE HYDROCHLORIDE
     Indication: RHINITIS ALLERGIC
     Dosage: 10 MG, QD
     Route: 065
     Dates: start: 20160301
  2. FERROUS GLUCONATE [Concomitant]
     Active Substance: FERROUS GLUCONATE
     Indication: ANAEMIA
     Dosage: UNK
     Route: 065
     Dates: start: 20180316
  3. MULTIVITAMINS [Concomitant]
     Active Substance: VITAMINS
     Indication: NUTRITIONAL SUPPLEMENTATION
     Dosage: UNK
     Route: 065
     Dates: start: 20180309
  4. TOBI PODHALER [Suspect]
     Active Substance: TOBRAMYCIN
     Indication: PSEUDOMONAS INFECTION
     Dosage: 112 MG, BID
     Route: 055
     Dates: start: 20180301
  5. TOBI PODHALER [Suspect]
     Active Substance: TOBRAMYCIN
     Dosage: 112 MG, BID
     Route: 055
     Dates: start: 20180309
  6. TOBI [Suspect]
     Active Substance: TOBRAMYCIN
     Indication: PSEUDOMONAS INFECTION
  7. PROAIR HFA [Concomitant]
     Active Substance: ALBUTEROL SULFATE
     Indication: PROPHYLAXIS
     Dosage: 180 UG, PRN
     Route: 065
     Dates: start: 20130101
  8. ZOSYN [Concomitant]
     Active Substance: PIPERACILLIN SODIUM\TAZOBACTAM SODIUM
     Indication: LUNG INFECTION
  9. COLISTIN [Concomitant]
     Active Substance: COLISTIN
     Indication: LUNG INFECTION
  10. CAYSTON [Suspect]
     Active Substance: AZTREONAM
     Indication: LUNG INFECTION
     Dosage: 75 MG, TID
     Route: 055
     Dates: start: 20180115
  11. NEBCIN [Concomitant]
     Active Substance: TOBRAMYCIN SULFATE
     Indication: PSEUDOMONAS INFECTION
     Dosage: UNK
     Route: 065
     Dates: start: 20180309, end: 20180311
  12. VITAMIN D3 [Concomitant]
     Active Substance: CHOLECALCIFEROL
     Indication: VITAMIN D DEFICIENCY
     Dosage: UNK
     Route: 065
     Dates: start: 20110101
  13. CULTURELLE [Concomitant]
     Active Substance: LACTOBACILLUS RHAMNOSUS
     Indication: PROBIOTIC THERAPY
     Dosage: UNK
     Route: 065
     Dates: start: 20170301, end: 20171201
  14. CAYSTON [Suspect]
     Active Substance: AZTREONAM
     Indication: PSEUDOMONAS INFECTION
     Dosage: UNK
     Route: 065
     Dates: start: 20171120
  15. NUVARING [Concomitant]
     Active Substance: ETHINYL ESTRADIOL\ETONOGESTREL
     Indication: CONTRACEPTION
     Dosage: UNK
     Route: 065
     Dates: start: 20150601
  16. IBUPROFEN. [Concomitant]
     Active Substance: IBUPROFEN
     Indication: PYREXIA
  17. ZOSYN [Concomitant]
     Active Substance: PIPERACILLIN SODIUM\TAZOBACTAM SODIUM
     Indication: PSEUDOMONAS INFECTION
     Dosage: 4.5 G, Q8H
     Route: 042
     Dates: start: 20180309, end: 20180316
  18. TOBI PODHALER [Suspect]
     Active Substance: TOBRAMYCIN
     Indication: CYSTIC FIBROSIS
     Dosage: UNK
     Route: 055
     Dates: start: 20170913
  19. CAYSTON [Suspect]
     Active Substance: AZTREONAM
     Dosage: 75 MG, TID
     Route: 055
     Dates: start: 20180228
  20. TEZACAFTOR [Concomitant]
     Active Substance: TEZACAFTOR
     Indication: PSEUDOMONAS INFECTION
     Dosage: UNK
     Route: 065
     Dates: start: 20180328
  21. FLUTICASONE. [Concomitant]
     Active Substance: FLUTICASONE
     Indication: RHINITIS ALLERGIC
     Dosage: 100 UG, BID
     Route: 065
     Dates: start: 20130101
  22. PULMOZYME [Concomitant]
     Active Substance: DORNASE ALFA
     Indication: CYSTIC FIBROSIS LUNG
     Dosage: 2.5 MG, QD
     Route: 065
     Dates: start: 20110101
  23. NEBCIN [Concomitant]
     Active Substance: TOBRAMYCIN SULFATE
     Indication: LUNG INFECTION
  24. COLISTIN [Concomitant]
     Active Substance: COLISTIN
     Indication: PSEUDOMONAS INFECTION
     Dosage: 75 MG, TID
     Route: 055
     Dates: start: 20180309, end: 20180316
  25. TOBI [Suspect]
     Active Substance: TOBRAMYCIN
     Indication: CYSTIC FIBROSIS
     Dosage: UNK
     Route: 055
     Dates: start: 20170725, end: 20170816
  26. CALCIUM [Concomitant]
     Active Substance: CALCIUM
     Indication: NUTRITIONAL SUPPLEMENTATION
  27. IBUPROFEN. [Concomitant]
     Active Substance: IBUPROFEN
     Indication: SINUS PAIN
     Dosage: UNK
     Route: 065
     Dates: start: 19980101

REACTIONS (16)
  - Middle insomnia [Unknown]
  - Chills [Unknown]
  - Gastrooesophageal reflux disease [Unknown]
  - Productive cough [Recovering/Resolving]
  - Dyspnoea exertional [Unknown]
  - Hypotension [Unknown]
  - Dyspnoea [Unknown]
  - Decreased appetite [Unknown]
  - Weight decreased [Unknown]
  - Fatigue [Unknown]
  - Dysphonia [Unknown]
  - Infective pulmonary exacerbation of cystic fibrosis [Recovered/Resolved]
  - Cough [Recovering/Resolving]
  - Nausea [Recovered/Resolved]
  - Infective pulmonary exacerbation of cystic fibrosis [Recovered/Resolved]
  - Dizziness [Recovered/Resolved]

NARRATIVE: CASE EVENT DATE: 20170812
